FAERS Safety Report 25148161 (Version 6)
Quarter: 2025Q4

REPORT INFORMATION
  Report Type: Spontaneous
  Country: US (occurrence: US)
  Receive Date: 20250402
  Receipt Date: 20251202
  Transmission Date: 20260117
  Serious: Yes (Hospitalization)
  Sender: ROCHE
  Company Number: US-ROCHE-10000243116

PATIENT
  Age: 16 Year
  Sex: Male

DRUGS (8)
  1. HEMLIBRA [Suspect]
     Active Substance: EMICIZUMAB-KXWH
     Indication: Factor VIII deficiency
     Dosage: STRENGTH- 300MG/2ML
     Route: 058
     Dates: start: 202410
  2. HEMLIBRA [Suspect]
     Active Substance: EMICIZUMAB-KXWH
     Dosage: STRENGTH- 60MG/0.4ML
     Route: 058
     Dates: start: 202410
  3. HEMLIBRA [Suspect]
     Active Substance: EMICIZUMAB-KXWH
     Dosage: STRENGTH- 105MG/0.7ML
     Route: 058
     Dates: start: 202410
  4. HEMLIBRA [Suspect]
     Active Substance: EMICIZUMAB-KXWH
     Dosage: STRENGTH- 105MG/0.7ML ?60MG/0.4 ML?STRENGTH-300MG/ 2ML
     Route: 058
     Dates: start: 202410
  5. HEMLIBRA [Suspect]
     Active Substance: EMICIZUMAB-KXWH
     Dosage: STRENGTH: 300MG/ 2ML
     Route: 058
     Dates: start: 202410
  6. HEMLIBRA [Suspect]
     Active Substance: EMICIZUMAB-KXWH
     Dosage: STRENGTH: 105MG/0.7ML
     Route: 058
     Dates: start: 20241007
  7. HEMLIBRA [Suspect]
     Active Substance: EMICIZUMAB-KXWH
     Dosage: STRENGTH: 60MG/0.4ML
     Route: 058
     Dates: start: 20241007
  8. advate injection [Concomitant]

REACTIONS (4)
  - Haemorrhage [Unknown]
  - Muscle haemorrhage [Recovered/Resolved]
  - Haemorrhage [Unknown]
  - Product prescribing issue [Unknown]

NARRATIVE: CASE EVENT DATE: 20250206
